FAERS Safety Report 20071315 (Version 1)
Quarter: 2021Q4

REPORT INFORMATION
  Report Type: Spontaneous
  Country: US (occurrence: US)
  Receive Date: 20211115
  Receipt Date: 20211115
  Transmission Date: 20220304
  Serious: No
  Sender: FDA-Public Use
  Company Number: US-THE RITEDOSE CORPORATION-2020RIT000312

PATIENT

DRUGS (1)
  1. IPRATROPIUM BROMIDE AND ALBUTEROL SULFATE [Suspect]
     Active Substance: ALBUTEROL SULFATE\IPRATROPIUM BROMIDE
     Indication: Asthma
     Route: 055

REACTIONS (6)
  - Nasopharyngitis [Unknown]
  - Nasal obstruction [Unknown]
  - Ear discomfort [Unknown]
  - Cough [Unknown]
  - Hypoacusis [Unknown]
  - Product use in unapproved indication [Unknown]
